FAERS Safety Report 8106811-3 (Version None)
Quarter: 2012Q1

REPORT INFORMATION
  Report Type: 
  Country: None (occurrence: None)
  Receive Date: 20120130
  Receipt Date: 20120116
  Transmission Date: 20120608
  Serious: Yes (Hospitalization, Disabling, Other)
  Sender: FDA-Public Use
  Company Number: 2012MA000729

PATIENT
  Sex: Female
  Weight: 51.4 kg

DRUGS (23)
  1. ATROPINE [Concomitant]
  2. DILTIAZEM HCL [Concomitant]
  3. LIDOCAINE [Concomitant]
  4. SOLIN [Concomitant]
  5. CARDIZEM [Concomitant]
  6. COLACE [Concomitant]
  7. GEMFIBROZIL [Concomitant]
  8. PLAVIX [Concomitant]
  9. HEPARIN [Concomitant]
  10. LASIX [Concomitant]
  11. VASOTEC [Concomitant]
  12. ZOCOR [Concomitant]
  13. ASPIRIN [Concomitant]
  14. COUMADIN [Concomitant]
  15. LEVAQUIN [Concomitant]
  16. SIMVASTATIN [Concomitant]
  17. VERAPAMIL [Concomitant]
  18. CARTIA XT [Concomitant]
  19. CLOPIDOGREL [Concomitant]
  20. PNEUMOCOCCAL VACCINE [Concomitant]
  21. ENALAPRIL MALEATE [Concomitant]
  22. DIGOXIN [Suspect]
     Dosage: 0.125 MG;QD;PO
     Route: 048
     Dates: start: 20060324, end: 20090528
  23. LEVOXYL [Concomitant]

REACTIONS (32)
  - WEIGHT INCREASED [None]
  - ARRHYTHMIA [None]
  - DYSPHAGIA [None]
  - SPEECH DISORDER [None]
  - FATIGUE [None]
  - DIVERTICULUM [None]
  - VIITH NERVE PARALYSIS [None]
  - ATRIAL FIBRILLATION [None]
  - HEADACHE [None]
  - ASTHENIA [None]
  - FALL [None]
  - HYPOTHYROIDISM [None]
  - RENAL ATROPHY [None]
  - PANCREATIC DUCT DILATATION [None]
  - DIZZINESS [None]
  - APHAGIA [None]
  - HEMIPLEGIA [None]
  - ADNEXA UTERI CYST [None]
  - LIPIDS INCREASED [None]
  - CEREBRAL INFARCTION [None]
  - ACTIVITIES OF DAILY LIVING IMPAIRED [None]
  - RENAL HYPERTROPHY [None]
  - MOBILITY DECREASED [None]
  - HEMIPARESIS [None]
  - BLOOD PRESSURE INCREASED [None]
  - CEREBROVASCULAR ACCIDENT [None]
  - CONSTIPATION [None]
  - CEREBRAL ARTERY EMBOLISM [None]
  - GAIT DISTURBANCE [None]
  - MALAISE [None]
  - CHOLECYSTITIS ACUTE [None]
  - ISCHAEMIC CEREBRAL INFARCTION [None]
